FAERS Safety Report 21172246 (Version 1)
Quarter: 2022Q3

REPORT INFORMATION
  Report Type: Spontaneous
  Country: BR (occurrence: BR)
  Receive Date: 20220804
  Receipt Date: 20220804
  Transmission Date: 20221027
  Serious: Yes (Death, Other)
  Sender: FDA-Public Use
  Company Number: BR-SLATE RUN PHARMACEUTICALS-22BR001241

PATIENT

DRUGS (3)
  1. VORICONAZOLE [Suspect]
     Active Substance: VORICONAZOLE
     Indication: Fusarium infection
     Dosage: UNK
  2. AMPHOTERICIN B [Suspect]
     Active Substance: AMPHOTERICIN B
     Indication: Fusarium infection
     Dosage: UNK
  3. CEFEPIME [Concomitant]
     Active Substance: CEFEPIME HYDROCHLORIDE
     Indication: Febrile neutropenia

REACTIONS (2)
  - Immune system disorder [Fatal]
  - Treatment failure [Not Recovered/Not Resolved]
